FAERS Safety Report 6156848-9 (Version None)
Quarter: 2009Q2

REPORT INFORMATION
  Report Type: 
  Country: None (occurrence: None)
  Receive Date: 20090416
  Receipt Date: 20090403
  Transmission Date: 20091009
  Serious: Yes (Hospitalization)
  Sender: FDA-Public Use
  Company Number: US-ELI_LILLY_AND_COMPANY-US200904000872

PATIENT
  Sex: Female

DRUGS (7)
  1. CYMBALTA [Suspect]
     Indication: DEPRESSION
     Dosage: 60 MG, DAILY (1/D)
     Route: 048
  2. SEROQUEL [Concomitant]
  3. PROTONIX [Concomitant]
  4. MOBIC [Concomitant]
  5. VITAMIN D [Concomitant]
  6. MORPHINE [Concomitant]
     Route: 042
  7. PAIN RELIEF [Concomitant]

REACTIONS (5)
  - ALANINE AMINOTRANSFERASE INCREASED [None]
  - ASPARTATE AMINOTRANSFERASE INCREASED [None]
  - DRUG INTERACTION [None]
  - KNEE ARTHROPLASTY [None]
  - VITAMIN D DECREASED [None]
